FAERS Safety Report 9211103 (Version 1)
Quarter: 2013Q2

REPORT INFORMATION
  Report Type: Spontaneous
  Country: US (occurrence: US)
  Receive Date: 20130404
  Receipt Date: 20130404
  Transmission Date: 20140414
  Serious: Yes (Hospitalization, Other)
  Sender: FDA-Public Use
  Company Number: US-ACTAVIS-2013-05553

PATIENT
  Age: 19 Year
  Sex: Female

DRUGS (1)
  1. ACETAMINOPHEN [Suspect]
     Indication: SUICIDE ATTEMPT
     Dosage: ONE-TIME INGESTION OF 225 TABLETS OF 500 MG
     Route: 048

REACTIONS (3)
  - Metabolic acidosis [Recovered/Resolved]
  - Lethargy [Unknown]
  - Intentional overdose [Unknown]
